FAERS Safety Report 6296398-2 (Version None)
Quarter: 2009Q3

REPORT INFORMATION
  Report Type: 
  Country: None (occurrence: None)
  Receive Date: 20090804
  Receipt Date: 20090729
  Transmission Date: 20100115
  Serious: Yes (Other)
  Sender: FDA-Public Use
  Company Number: US-JNJFOC-20090709765

PATIENT
  Sex: Male
  Weight: 127.01 kg

DRUGS (2)
  1. RISPERDAL [Suspect]
     Indication: SCHIZOPHRENIA
     Route: 048
  2. LEXAPRO [Suspect]
     Indication: ANXIETY
     Route: 065

REACTIONS (3)
  - ANXIETY [None]
  - MENISCUS LESION [None]
  - OEDEMA PERIPHERAL [None]
